FAERS Safety Report 26087729 (Version 1)
Quarter: 2025Q4

REPORT INFORMATION
  Report Type: Spontaneous
  Country: GB (occurrence: GB)
  Receive Date: 20251125
  Receipt Date: 20251125
  Transmission Date: 20260117
  Serious: Yes (Other)
  Sender: PFIZER
  Company Number: GB-PFIZER INC-PV202500136737

PATIENT
  Age: 63 Year
  Sex: Female

DRUGS (1)
  1. ELRANATAMAB [Suspect]
     Active Substance: ELRANATAMAB
     Dosage: UNK
     Dates: start: 202404

REACTIONS (4)
  - Cytokine release syndrome [Unknown]
  - Cytopenia [Unknown]
  - Upper respiratory tract infection [Unknown]
  - Rash maculo-papular [Unknown]
